FAERS Safety Report 10430501 (Version 1)
Quarter: 2014Q3

REPORT INFORMATION
  Report Type: Report from Study
  Country: BR (occurrence: BR)
  Receive Date: 20140904
  Receipt Date: 20140904
  Transmission Date: 20150326
  Serious: Yes (Disabling, Other)
  Sender: FDA-Public Use
  Company Number: PHHY2014BR111143

PATIENT
  Sex: Male
  Weight: 93 kg

DRUGS (7)
  1. ATENOL [Concomitant]
     Active Substance: ATENOLOL
     Indication: HYPERTENSION
     Dosage: 1 DF (1 TABLET), QD (IN THE MORNING)
  2. MANIVASC [Concomitant]
     Active Substance: MANIDIPINE HYDROCHLORIDE
     Dosage: 1 DF (1 TABLET), QD (IN THE MORNING)
  3. EXELON PATCH [Suspect]
     Active Substance: RIVASTIGMINE
     Indication: MENTAL DISORDER
     Dosage: 9.5 MG (PATCH 10CM2), DAILY
     Route: 062
  4. PURAN [Concomitant]
     Active Substance: LEVOTHYROXINE SODIUM
     Indication: HYPOTHYROIDISM
     Dosage: 1 DF (1 TABLET), QD (IN THE MORNING)
  5. NEOTIAPIM [Suspect]
     Active Substance: QUETIAPINE
     Indication: MENTAL DISORDER
     Dosage: 1 DF (1 TABLET), Q4H
     Dates: start: 201403
  6. COLPRAREX [Concomitant]
     Indication: SWELLING
     Dosage: 1 DF (1 TABLET), QD (IN THE MORNING)
  7. COLPRAREX [Concomitant]
     Indication: HYPERTENSION

REACTIONS (6)
  - Paralysis [Recovered/Resolved]
  - Abasia [Recovered/Resolved]
  - Nervousness [Recovered/Resolved]
  - Asthenia [Recovered/Resolved]
  - Weight increased [Recovered/Resolved]
  - Diet refusal [Recovered/Resolved]
